FAERS Safety Report 6184799-2 (Version None)
Quarter: 2009Q2

REPORT INFORMATION
  Report Type: 
  Country: None (occurrence: None)
  Receive Date: 20090508
  Receipt Date: 20090501
  Transmission Date: 20091009
  Serious: Yes (Other)
  Sender: FDA-Public Use
  Company Number: IT-ALLERGAN-0902090US

PATIENT
  Sex: Female
  Weight: 55 kg

DRUGS (2)
  1. GANFORT [Suspect]
     Indication: GLAUCOMA
     Dosage: UNK, UNK
     Route: 047
     Dates: start: 20081020, end: 20081104
  2. PILOCARPINA 2% [Suspect]
     Indication: GLAUCOMA
     Dosage: UNK, UNK
     Route: 047
     Dates: start: 20081020, end: 20081104

REACTIONS (17)
  - BLINDNESS UNILATERAL [None]
  - CATARACT [None]
  - CONFUSIONAL STATE [None]
  - DRY MOUTH [None]
  - DYSKINESIA [None]
  - EYELASH DISCOLOURATION [None]
  - FATIGUE [None]
  - GAIT DISTURBANCE [None]
  - HAIR COLOUR CHANGES [None]
  - HALLUCINATION [None]
  - HEADACHE [None]
  - HYPERSENSITIVITY [None]
  - NERVOUS SYSTEM DISORDER [None]
  - NIGHTMARE [None]
  - SKIN ULCER [None]
  - SUDDEN ONSET OF SLEEP [None]
  - VISUAL ACUITY REDUCED [None]
